FAERS Safety Report 6054403-2 (Version None)
Quarter: 2009Q1

REPORT INFORMATION
  Report Type: 
  Country: None (occurrence: None)
  Receive Date: 20090123
  Receipt Date: 20090123
  Transmission Date: 20090719
  Serious: Yes (Hospitalization)
  Sender: FDA-Public Use
  Company Number: None

PATIENT
  Age: 39 Year
  Sex: Male
  Weight: 86.637 kg

DRUGS (2)
  1. SORAFENIB [Suspect]
     Indication: GLIOMA
     Dosage: 200MG BID
     Dates: start: 20080422, end: 20080605
  2. TEMOZOLOMIDE [Suspect]
     Dosage: 75MG BID
     Dates: start: 20080422, end: 20080506

REACTIONS (3)
  - CONVULSION [None]
  - DYSAESTHESIA [None]
  - HEMIPARESIS [None]
